FAERS Safety Report 13586514 (Version 2)
Quarter: 2017Q3

REPORT INFORMATION
  Report Type: Spontaneous
  Country: US (occurrence: US)
  Receive Date: 20170526
  Receipt Date: 20170929
  Transmission Date: 20171127
  Serious: Yes (Hospitalization, Disabling)
  Sender: FDA-Public Use
  Company Number: US-LUNDBECK-DKLU2031776

PATIENT
  Age: 46 Year
  Sex: Female

DRUGS (2)
  1. NORTHERA [Suspect]
     Active Substance: DROXIDOPA
     Indication: HEART RATE INCREASED
     Dosage: INCREASED EVERY 48 HOURS TO 18 CAPSULES PER DAY
     Route: 048
     Dates: start: 20150925
  2. NORTHERA [Suspect]
     Active Substance: DROXIDOPA
     Route: 048
     Dates: end: 20151024

REACTIONS (8)
  - Reversible cerebral vasoconstriction syndrome [Recovered/Resolved with Sequelae]
  - Blood potassium decreased [Unknown]
  - Blood magnesium decreased [Unknown]
  - Headache [Not Recovered/Not Resolved]
  - Vomiting [Unknown]
  - Nausea [Unknown]
  - Hyperhidrosis [Unknown]
  - Autonomic nervous system imbalance [Unknown]

NARRATIVE: CASE EVENT DATE: 20151115
